FAERS Safety Report 7969453-6 (Version None)
Quarter: 2011Q4

REPORT INFORMATION
  Report Type: 
  Country: None (occurrence: None)
  Receive Date: 20111212
  Receipt Date: 20111206
  Transmission Date: 20120403
  Serious: Yes (Hospitalization)
  Sender: FDA-Public Use
  Company Number: US-BIOGENIDEC-2011BI046480

PATIENT
  Age: 55 Year
  Sex: Male

DRUGS (2)
  1. PERCOCET [Concomitant]
     Indication: BACK PAIN
  2. TYSABRI [Suspect]
     Indication: MULTIPLE SCLEROSIS
     Route: 042
     Dates: start: 20110228

REACTIONS (7)
  - HYPOAESTHESIA [None]
  - PROCEDURAL PAIN [None]
  - ARTHRALGIA [None]
  - SPINAL OPERATION [None]
  - MUSCLE SPASMS [None]
  - INTERVERTEBRAL DISC DEGENERATION [None]
  - SPONDYLITIS [None]
